FAERS Safety Report 8254723-7 (Version None)
Quarter: 2012Q1

REPORT INFORMATION
  Report Type: 
  Country: None (occurrence: None)
  Receive Date: 20120322
  Receipt Date: 20120111
  Transmission Date: 20120608
  Serious: Yes (Other)
  Sender: FDA-Public Use
  Company Number: UTC-013567

PATIENT
  Age: 67 Year
  Sex: Male
  Weight: 97.72 kg

DRUGS (2)
  1. COUMADIN [Concomitant]
  2. TYVASO [Suspect]
     Indication: PULMONARY ARTERIAL HYPERTENSION
     Dosage: 18-54 MICROGRAMS (4 IN 1 D)
     Dates: start: 20110317

REACTIONS (1)
  - IDIOPATHIC PULMONARY FIBROSIS [None]
